FAERS Safety Report 12908363 (Version 3)
Quarter: 2017Q1

REPORT INFORMATION
  Report Type: Spontaneous
  Country: US (occurrence: US)
  Receive Date: 20161103
  Receipt Date: 20170224
  Transmission Date: 20170428
  Serious: Yes (Life-Threatening, Hospitalization, Other)
  Sender: FDA-Public Use
  Company Number: US-SAOL THERAPEUTICS-2016SAO00975

PATIENT
  Sex: Female

DRUGS (11)
  1. BACLOFEN. [Suspect]
     Active Substance: BACLOFEN
     Dosage: 5.743 ?G, \DAY
     Route: 037
  2. CLONIDINE. [Suspect]
     Active Substance: CLONIDINE
     Dosage: 1.435 ?G, \DAY
     Route: 037
  3. CLONIDINE. [Suspect]
     Active Substance: CLONIDINE
     Indication: PAIN
     Dosage: 1.1486 ?G, \DAY
     Route: 037
  4. BACLOFEN. [Suspect]
     Active Substance: BACLOFEN
     Indication: BACK PAIN
  5. BUPIVACAINE. [Suspect]
     Active Substance: BUPIVACAINE
     Dosage: 5.743 MG, \DAY
     Route: 037
  6. BACLOFEN. [Suspect]
     Active Substance: BACLOFEN
     Indication: PAIN
     Dosage: 4.595 ?G, \DAY
     Route: 037
  7. BUPIVACAINE. [Suspect]
     Active Substance: BUPIVACAINE
     Dosage: 4.595 MG, \DAY
     Route: 037
  8. MORPHINE [Suspect]
     Active Substance: MORPHINE
     Dosage: 11.486 MG, \DAY
     Route: 037
  9. BACLOFEN. [Concomitant]
     Active Substance: BACLOFEN
     Dosage: 10 MG, 3X/DAY
     Route: 048
  10. MORPHINE [Suspect]
     Active Substance: MORPHINE
     Dosage: 0.699 MG, \DAY
     Route: 037
  11. DILAUDID [Concomitant]
     Active Substance: HYDROMORPHONE HYDROCHLORIDE
     Dosage: 4 MG, 4X/DAY
     Route: 048

REACTIONS (32)
  - Narcolepsy [Unknown]
  - PCO2 increased [Unknown]
  - Sleep apnoea syndrome [Unknown]
  - Somnolence [Unknown]
  - Visual impairment [Unknown]
  - Unevaluable event [Unknown]
  - Overdose [Unknown]
  - Insomnia [Unknown]
  - Respiratory arrest [Unknown]
  - Fatigue [Unknown]
  - Hypoacusis [Unknown]
  - Sleep disorder [Unknown]
  - Amnesia [Unknown]
  - Device dislocation [Not Recovered/Not Resolved]
  - Implant site infection [Recovered/Resolved]
  - Hypersomnia [Unknown]
  - Medical device discomfort [Unknown]
  - Incision site infection [Unknown]
  - Back pain [Unknown]
  - Fall [Unknown]
  - Arthralgia [Unknown]
  - Decreased appetite [Unknown]
  - Pain [Unknown]
  - Sepsis [Unknown]
  - Performance status decreased [Unknown]
  - Off label use [Unknown]
  - Cardiac arrest [Unknown]
  - Psychomotor hyperactivity [Unknown]
  - Poor quality sleep [Unknown]
  - Soft tissue inflammation [Unknown]
  - Aphasia [Unknown]
  - Respiratory disorder [Unknown]

NARRATIVE: CASE EVENT DATE: 1999
